FAERS Safety Report 11509892 (Version 1)
Quarter: 2015Q3

REPORT INFORMATION
  Report Type: Spontaneous
  Country: US (occurrence: US)
  Receive Date: 20150915
  Receipt Date: 20150915
  Transmission Date: 20151125
  Serious: No
  Sender: FDA-Public Use
  Company Number: US-JNJFOC-20150720227

PATIENT
  Age: 30 Year
  Sex: Male

DRUGS (1)
  1. MOTRIN IB [Suspect]
     Active Substance: IBUPROFEN
     Indication: TOOTHACHE
     Dosage: 4 TABLETS EVERY 4, 6, 8 HOURS
     Route: 048
     Dates: start: 20150722, end: 20150723

REACTIONS (4)
  - Eating disorder [Unknown]
  - Gastrointestinal pain [Not Recovered/Not Resolved]
  - Overdose [Not Recovered/Not Resolved]
  - Abdominal distension [Not Recovered/Not Resolved]
